FAERS Safety Report 15594044 (Version 1)
Quarter: 2018Q4

REPORT INFORMATION
  Report Type: Spontaneous
  Country: CN (occurrence: CN)
  Receive Date: 20181107
  Receipt Date: 20181107
  Transmission Date: 20190205
  Serious: Yes (Hospitalization)
  Sender: FDA-Public Use
  Company Number: CN-BAYER-2018-201649

PATIENT
  Age: 54 Year
  Sex: Female
  Weight: 60 kg

DRUGS (1)
  1. BAYASPIRIN 100 MG [Suspect]
     Active Substance: ASPIRIN
     Indication: PLATELET DISORDER
     Dosage: 100 MG, QD
     Route: 048
     Dates: start: 20180908, end: 20180917

REACTIONS (3)
  - Gingival bleeding [Recovering/Resolving]
  - Coagulopathy [Recovering/Resolving]
  - Ecchymosis [Recovering/Resolving]

NARRATIVE: CASE EVENT DATE: 20180917
